FAERS Safety Report 6059337-5 (Version None)
Quarter: 2009Q1

REPORT INFORMATION
  Report Type: 
  Country: None (occurrence: None)
  Receive Date: 20090128
  Receipt Date: 20090121
  Transmission Date: 20090719
  Serious: Yes (Other)
  Sender: FDA-Public Use
  Company Number: 2009SP001676

PATIENT
  Age: 38 Year
  Sex: Female

DRUGS (1)
  1. MIRALAX [Suspect]
     Indication: DRUG USE FOR UNKNOWN INDICATION
     Dosage: PO
     Route: 048

REACTIONS (4)
  - CHEST DISCOMFORT [None]
  - GINGIVAL SWELLING [None]
  - PARAESTHESIA ORAL [None]
  - THROAT TIGHTNESS [None]
